FAERS Safety Report 23868771 (Version 3)
Quarter: 2024Q2

REPORT INFORMATION
  Report Type: Report from Study
  Country: IT (occurrence: IT)
  Receive Date: 20240517
  Receipt Date: 20240625
  Transmission Date: 20240716
  Serious: Yes (Hospitalization, Other)
  Sender: FDA-Public Use
  Company Number: IT-SA-SAC20240510001140

PATIENT
  Age: 56 Year
  Sex: Female
  Weight: 67 kg

DRUGS (13)
  1. BELUMOSUDIL MESYLATE [Suspect]
     Active Substance: BELUMOSUDIL MESYLATE
     Indication: Chronic graft versus host disease
     Dosage: 200 MG, QD
     Route: 048
     Dates: start: 20231016, end: 20240306
  2. BELUMOSUDIL MESYLATE [Suspect]
     Active Substance: BELUMOSUDIL MESYLATE
     Dosage: 200 MG, BID
     Route: 048
     Dates: start: 20240406
  3. PANTOPRAZOLE SODIUM [Concomitant]
     Active Substance: PANTOPRAZOLE SODIUM
     Dosage: UNK
     Dates: start: 20240406
  4. ACYCLOVIR [Concomitant]
     Active Substance: ACYCLOVIR
     Indication: Antiviral prophylaxis
     Dosage: 400 MG, BID
     Route: 048
     Dates: start: 20091217
  5. BACTRIM [Concomitant]
     Active Substance: SULFAMETHOXAZOLE\TRIMETHOPRIM
     Indication: Antibiotic prophylaxis
     Dosage: 10 ML, BIW
     Route: 048
     Dates: start: 20100101
  6. RUXOLITINIB [Concomitant]
     Active Substance: RUXOLITINIB
     Indication: Chronic graft versus host disease
     Dosage: 10 MG, BID
     Route: 048
     Dates: start: 20181115
  7. DEURSIL [Concomitant]
     Active Substance: URSODIOL
     Indication: Liver disorder
     Dosage: 300 MG, BID
     Route: 048
     Dates: start: 20191127
  8. BISOPROLOL FUMARATE [Concomitant]
     Active Substance: BISOPROLOL FUMARATE
     Indication: Cardiovascular disorder
     Dosage: 1.25 MG, BID
     Route: 048
     Dates: start: 20201124
  9. IVABRADINA [IVABRADINE] [Concomitant]
     Indication: Cardiovascular disorder
     Dosage: 5 MG, BID
     Route: 048
     Dates: start: 20201124
  10. CANRENOATE POTASSIUM [Concomitant]
     Active Substance: CANRENOATE POTASSIUM
     Indication: Cardiovascular disorder
     Dosage: 50 MG, QD
     Route: 048
     Dates: start: 20201124
  11. ATORVASTATIN [Concomitant]
     Active Substance: ATORVASTATIN
     Indication: Cardiovascular disorder
     Dosage: 10 MG, QD
     Route: 048
     Dates: start: 20201124
  12. PREDNISONE [Concomitant]
     Active Substance: PREDNISONE
     Indication: Chronic graft versus host disease
     Dosage: 12.5 MG, QD
     Route: 048
     Dates: start: 20240611, end: 20240614
  13. PREDNISONE [Concomitant]
     Active Substance: PREDNISONE
     Dosage: 6.25 MG, QD
     Route: 048
     Dates: start: 20240615, end: 20240618

REACTIONS (5)
  - Pneumothorax [Recovering/Resolving]
  - Dyspnoea [Recovering/Resolving]
  - Flank pain [Recovering/Resolving]
  - Acute respiratory failure [Unknown]
  - Morganella infection [Unknown]

NARRATIVE: CASE EVENT DATE: 20240427
